FAERS Safety Report 5892626-3 (Version None)
Quarter: 2008Q3

REPORT INFORMATION
  Report Type: 
  Country: None (occurrence: None)
  Receive Date: 20080923
  Receipt Date: 20080919
  Transmission Date: 20090109
  Serious: Yes (Other)
  Sender: FDA-Public Use
  Company Number: US-RB-004632-06

PATIENT
  Sex: Female
  Weight: 45.9 kg

DRUGS (12)
  1. SUBOXONE [Suspect]
     Route: 060
     Dates: start: 20060615, end: 20080812
  2. SUBOXONE [Suspect]
     Route: 060
     Dates: start: 20060322, end: 20060614
  3. SUBOXONE [Suspect]
     Route: 060
     Dates: start: 20080813
  4. CYMBALTA [Concomitant]
     Indication: DEPRESSION
     Dates: start: 20060901
  5. SINEQUAN [Concomitant]
     Indication: DEPRESSION
     Route: 048
  6. CELEXA [Concomitant]
     Indication: DEPRESSION
     Route: 048
  7. PERCOCET [Suspect]
     Indication: DRUG USE FOR UNKNOWN INDICATION
     Dosage: DOSING INFORMATION UNKNOWN
     Route: 048
     Dates: start: 20080801
  8. NIRAVAM [Suspect]
     Indication: DRUG USE FOR UNKNOWN INDICATION
     Route: 048
     Dates: start: 20080801, end: 20080801
  9. MARIJUANA [Suspect]
     Indication: DRUG USE FOR UNKNOWN INDICATION
     Dosage: DOSING INFORMATION UNKNOWN
     Route: 065
     Dates: start: 20080801
  10. BENZODIAZEPINES [Suspect]
     Indication: DRUG USE FOR UNKNOWN INDICATION
     Dosage: DOSING INFORMATION UNKNOWN
     Route: 065
     Dates: start: 20080801
  11. PROTONIX [Concomitant]
     Route: 048
     Dates: start: 20061001
  12. PROTONIX [Concomitant]
     Route: 048
     Dates: start: 20061001

REACTIONS (7)
  - ACNE CYSTIC [None]
  - FACIAL PALSY [None]
  - FIBROCYSTIC BREAST DISEASE [None]
  - MENSTRUATION IRREGULAR [None]
  - MUSCULAR WEAKNESS [None]
  - OILY SKIN [None]
  - TRANSIENT ISCHAEMIC ATTACK [None]
